FAERS Safety Report 9232047 (Version 1)
Quarter: 2013Q2

REPORT INFORMATION
  Report Type: Other
  Country: DE (occurrence: DE)
  Receive Date: 20130415
  Receipt Date: 20130415
  Transmission Date: 20140414
  Serious: Yes (Other)
  Sender: FDA-Public Use
  Company Number: DE-WATSON-2013-06409

PATIENT
  Sex: Male
  Weight: 75 kg

DRUGS (1)
  1. HYDROCHLOROTHIAZIDE (UNKNOWN) [Suspect]
     Indication: ESSENTIAL HYPERTENSION
     Dosage: UNK
     Route: 048

REACTIONS (1)
  - Depression [Recovered/Resolved]
